FAERS Safety Report 14372650 (Version 2)
Quarter: 2018Q1

REPORT INFORMATION
  Report Type: Spontaneous
  Country: IL (occurrence: IL)
  Receive Date: 20180110
  Receipt Date: 20180328
  Transmission Date: 20180509
  Serious: Yes (Hospitalization, Other)
  Sender: FDA-Public Use
  Company Number: IL-MYLANLABS-2017M1083735

PATIENT
  Age: 36 Year
  Sex: Female

DRUGS (3)
  1. 5-FLUOROURACIL                     /00098801/ [Concomitant]
     Active Substance: FLUOROURACIL
     Indication: ADENOCARCINOMA OF COLON
     Dosage: CONTINUOUS INFUSION AND BOLUS
     Route: 050
  2. MITOMYCIN. [Suspect]
     Active Substance: MITOMYCIN
     Indication: ADENOCARCINOMA OF COLON
     Dosage: UNK
     Route: 065
  3. LEUCOVORIN                         /00566701/ [Concomitant]
     Active Substance: LEUCOVORIN
     Indication: ADENOCARCINOMA OF COLON
     Dosage: UNK
     Route: 065

REACTIONS (6)
  - Posterior reversible encephalopathy syndrome [Recovering/Resolving]
  - Renal failure [Recovering/Resolving]
  - Pleural effusion [Recovering/Resolving]
  - Retinopathy hypertensive [Recovering/Resolving]
  - Thrombotic microangiopathy [Recovering/Resolving]
  - Hypertension [Recovering/Resolving]
